FAERS Safety Report 4307180-7 (Version None)
Quarter: 2004Q1

REPORT INFORMATION
  Report Type: 
  Country: None (occurrence: None)
  Receive Date: 20040224
  Receipt Date: 20040113
  Transmission Date: 20041129
  Serious: Yes (Hospitalization)
  Sender: FDA-Public Use
  Company Number: 04P-163-0247405-00

PATIENT
  Age: 26 Year
  Sex: Male

DRUGS (4)
  1. DEPAKOTE ER 500 MG (DEPAKOTE ER) (DIVALPROEX SODIUM) [Suspect]
     Dosage: SEE IMAGE
     Route: 048
     Dates: start: 20031204, end: 20031211
  2. DEPAKOTE ER 500 MG (DEPAKOTE ER) (DIVALPROEX SODIUM) [Suspect]
     Dosage: SEE IMAGE
     Route: 048
     Dates: start: 20031212, end: 20031218
  3. DEPAKOTE ER 500 MG (DEPAKOTE ER) (DIVALPROEX SODIUM) [Suspect]
     Dosage: SEE IMAGE
     Route: 048
     Dates: start: 20031219, end: 20031220
  4. DISULFIRAM [Concomitant]

REACTIONS (4)
  - ALANINE AMINOTRANSFERASE INCREASED [None]
  - ASPARTATE AMINOTRANSFERASE INCREASED [None]
  - NAUSEA [None]
  - VOMITING [None]
